FAERS Safety Report 4514806-1 (Version None)
Quarter: 2004Q4

REPORT INFORMATION
  Report Type: 
  Country: None (occurrence: None)
  Receive Date: 20041129
  Receipt Date: 20041129
  Transmission Date: 20050328
  Serious: No
  Sender: FDA-Public Use
  Company Number: None

PATIENT
  Age: 62 Year
  Sex: Female
  Weight: 51.2565 kg

DRUGS (2)
  1. TAXOL [Suspect]
     Dates: start: 20030414, end: 20030721
  2. CLODRONATE / PLACEBO [Concomitant]

REACTIONS (10)
  - CEREBRAL INFARCTION [None]
  - DEPRESSION [None]
  - DIZZINESS [None]
  - HOT FLUSH [None]
  - INSOMNIA [None]
  - MUSCLE CRAMP [None]
  - NEUROPATHY PERIPHERAL [None]
  - PAIN [None]
  - PAROSMIA [None]
  - TEARFULNESS [None]
